FAERS Safety Report 7350858-1 (Version None)
Quarter: 2011Q1

REPORT INFORMATION
  Report Type: 
  Country: None (occurrence: None)
  Receive Date: 20110314
  Receipt Date: 20110307
  Transmission Date: 20110831
  Serious: No
  Sender: FDA-Public Use
  Company Number: US-PFIZER INC-2011018148

PATIENT
  Sex: Female
  Weight: 59 kg

DRUGS (2)
  1. DEPO-ESTRADIOL [Suspect]
     Indication: HOT FLUSH
  2. DEPO-ESTRADIOL [Suspect]
     Indication: HORMONE REPLACEMENT THERAPY
     Dosage: 1 CC
     Route: 030
     Dates: start: 20101025

REACTIONS (1)
  - DRUG INEFFECTIVE [None]
